FAERS Safety Report 8219706-1 (Version None)
Quarter: 2012Q1

REPORT INFORMATION
  Report Type: 
  Country: None (occurrence: None)
  Receive Date: 20120319
  Receipt Date: 20120307
  Transmission Date: 20120608
  Serious: Yes (Other)
  Sender: FDA-Public Use
  Company Number: US-ROCHE-793706

PATIENT
  Sex: Female
  Weight: 68.1 kg

DRUGS (2)
  1. ACCUTANE [Suspect]
     Indication: ACNE
     Route: 065
  2. ACCUTANE [Suspect]
     Dates: start: 20040801, end: 20041001

REACTIONS (10)
  - INFLAMMATORY BOWEL DISEASE [None]
  - EMOTIONAL DISTRESS [None]
  - COLITIS ULCERATIVE [None]
  - INTESTINAL OBSTRUCTION [None]
  - INFERTILITY [None]
  - DEPRESSED MOOD [None]
  - OSTEOARTHRITIS [None]
  - IRRITABLE BOWEL SYNDROME [None]
  - SMALL INTESTINAL OBSTRUCTION [None]
  - INTESTINAL HAEMORRHAGE [None]
